FAERS Safety Report 25528496 (Version 5)
Quarter: 2025Q4

REPORT INFORMATION
  Report Type: Spontaneous
  Country: EU (occurrence: EU)
  Receive Date: 20250708
  Receipt Date: 20251205
  Transmission Date: 20260117
  Serious: Yes (Hospitalization)
  Sender: SANDOZ
  Company Number: EU-ASTRAZENECA-202506GLO003859AT

PATIENT
  Age: 56 Year
  Sex: Female
  Weight: 94 kg

DRUGS (79)
  1. CARBOPLATIN [Suspect]
     Active Substance: CARBOPLATIN
     Indication: Triple negative breast cancer
     Dosage: 1.5 AUC
     Route: 042
     Dates: start: 20250409, end: 20250604
  2. CARBOPLATIN [Suspect]
     Active Substance: CARBOPLATIN
     Indication: Non-small cell lung cancer
  3. CYCLOPHOSPHAMIDE [Suspect]
     Active Substance: CYCLOPHOSPHAMIDE
     Indication: Triple negative breast cancer
     Dosage: 600 MG/M2, START DATE: 11-JUL-2025
     Route: 042
     Dates: end: 20250829
  4. CYCLOPHOSPHAMIDE [Suspect]
     Active Substance: CYCLOPHOSPHAMIDE
     Indication: Non-small cell lung cancer
     Dosage: 600 MG/M2, START DATE: 11-JUL-2025
     Route: 065
     Dates: end: 20250919
  5. EPIRUBICIN [Suspect]
     Active Substance: EPIRUBICIN
     Indication: Triple negative breast cancer
     Dosage: 90 MG/M2,  (START DATE: 11-JUL-2025 00:00)
     Route: 042
     Dates: end: 20250829
  6. PACLITAXEL [Suspect]
     Active Substance: PACLITAXEL
     Indication: Triple negative breast cancer
     Dosage: 80 MG/M^2 80 MG/M2
     Route: 042
     Dates: start: 20250409, end: 20250604
  7. PEMBROLIZUMAB [Suspect]
     Active Substance: PEMBROLIZUMAB
     Indication: Triple negative breast cancer
     Dosage: 200 MG
     Route: 042
     Dates: start: 20250409, end: 20250521
  8. PEMBROLIZUMAB [Suspect]
     Active Substance: PEMBROLIZUMAB
     Indication: Non-small cell lung cancer
  9. METHYLPREDNISOLONE ACEPONATE [Concomitant]
     Active Substance: METHYLPREDNISOLONE ACEPONATE
     Indication: Rash
     Dosage: AS NEEDED
     Route: 061
     Dates: start: 20250628, end: 20250714
  10. METHYLPREDNISOLONE ACEPONATE [Concomitant]
     Active Substance: METHYLPREDNISOLONE ACEPONATE
     Dosage: AS NEEDED
     Route: 061
     Dates: start: 20250515, end: 20250521
  11. ATACAND [Concomitant]
     Active Substance: CANDESARTAN CILEXETIL
     Indication: Product used for unknown indication
     Dosage: AS NEEDED
     Route: 048
     Dates: start: 202508
  12. Bepanthen [Concomitant]
     Indication: Epistaxis
     Dosage: AS NEEDED
     Route: 045
     Dates: start: 20250430, end: 20250604
  13. BISOPROLOL [Concomitant]
     Active Substance: BISOPROLOL
     Indication: Sinus tachycardia
     Dosage: 2.5 MG, QD
     Route: 048
     Dates: start: 20250508, end: 202507
  14. CANCIDAS [Concomitant]
     Active Substance: CASPOFUNGIN ACETATE
     Indication: Product used for unknown indication
     Dosage: 70 MG, QD
     Route: 042
     Dates: start: 20250814, end: 20250821
  15. CEFAZOLIN [Concomitant]
     Active Substance: CEFAZOLIN
     Indication: Product used for unknown indication
     Dosage: 6 G, QD
     Route: 042
     Dates: start: 20251003
  16. CEFUROXIME [Concomitant]
     Active Substance: CEFUROXIME
     Indication: Product used for unknown indication
     Dosage: UNK
     Route: 065
  17. DESLORATADINE [Concomitant]
     Active Substance: DESLORATADINE
     Indication: Dermatitis exfoliative generalised
     Dosage: 5 MG, QD
     Route: 065
     Dates: start: 20250605, end: 20250606
  18. DEXAMETHASONE [Concomitant]
     Active Substance: DEXAMETHASONE
     Indication: Product used for unknown indication
     Dosage: UNK
     Route: 065
  19. Dioscomb [Concomitant]
     Indication: Varicose vein
     Dosage: 500 MILLIGRAM, BID
     Route: 048
  20. DIPHENHYDRAMINE [Concomitant]
     Active Substance: DIPHENHYDRAMINE
     Indication: Product used for unknown indication
     Dosage: UNK
     Route: 065
  21. LOPERAMIDE HYDROCHLORIDE [Concomitant]
     Active Substance: LOPERAMIDE HYDROCHLORIDE
     Indication: Diarrhoea
     Dosage: 2 MILLIGRAM, PRN
     Route: 065
     Dates: start: 20250423, end: 20250605
  22. EUTHYROX [Concomitant]
     Active Substance: LEVOTHYROXINE SODIUM
     Dosage: 50 UG, QD
     Route: 048
     Dates: start: 20250617, end: 20250627
  23. EUTHYROX [Concomitant]
     Active Substance: LEVOTHYROXINE SODIUM
     Indication: Hypothyroidism
     Dosage: 75 UG, QD
     Route: 048
     Dates: start: 20250628
  24. FAMOTIDINE [Concomitant]
     Active Substance: FAMOTIDINE
     Indication: Product used for unknown indication
     Dosage: UNK
     Route: 065
  25. DEXAMETHASONE [Concomitant]
     Active Substance: DEXAMETHASONE
     Indication: Chemotherapy
     Dosage: 12 MG, QD
     Route: 042
     Dates: start: 20250711, end: 20250711
  26. DEXAMETHASONE [Concomitant]
     Active Substance: DEXAMETHASONE
     Dosage: 20 MILLIGRAM, QW
     Route: 042
     Dates: start: 20250409, end: 20250604
  27. FOSFOMYCIN [Concomitant]
     Active Substance: FOSFOMYCIN
     Indication: Product used for unknown indication
     Dosage: 8 GRAM, BID
     Route: 042
     Dates: start: 20251003
  28. Glandomed [Concomitant]
     Indication: Stomatitis
     Dosage: 20 MILLILITRE, AS NEEDED
     Route: 065
     Dates: start: 20250507, end: 20250714
  29. DEXTROSE [Concomitant]
     Active Substance: DEXTROSE MONOHYDRATE
     Indication: Product used for unknown indication
     Dosage: UNK
     Route: 065
     Dates: start: 20250801, end: 20250801
  30. DIMETHINDENE MALEATE [Concomitant]
     Active Substance: DIMETHINDENE MALEATE
     Indication: Product used for unknown indication
     Dosage: 4 MILLIGRAM, QD
     Route: 042
     Dates: start: 20250816, end: 20250821
  31. Kalioral [Concomitant]
     Indication: Product used for unknown indication
     Dosage: 8 MILLILITER, QD
     Route: 048
     Dates: start: 20250819, end: 20250820
  32. LEVOCETIRIZINE DIHYDROCHLORIDE [Concomitant]
     Active Substance: LEVOCETIRIZINE DIHYDROCHLORIDE
     Indication: Dermatitis exfoliative generalised
     Dosage: 5 MILLIGRAM, PRN
     Route: 048
     Dates: start: 20250528, end: 20250606
  33. SULFAMETROLE\TRIMETHOPRIM [Concomitant]
     Active Substance: SULFAMETROLE\TRIMETHOPRIM
     Indication: Product used for unknown indication
     Dosage: OTHER
     Route: 048
     Dates: start: 20250606, end: 20250818
  34. LINEZOLID [Concomitant]
     Active Substance: LINEZOLID
     Indication: Product used for unknown indication
     Dosage: 600 MILLIGRAM, BID
     Route: 042
     Dates: start: 20251001, end: 20251003
  35. LOVENOX [Concomitant]
     Active Substance: ENOXAPARIN SODIUM
     Indication: Product used for unknown indication
     Dosage: 40 MG, QD
     Route: 058
     Dates: start: 20250813, end: 20250818
  36. LOVENOX [Concomitant]
     Active Substance: ENOXAPARIN SODIUM
     Dosage: 40 MG, QD
     Route: 058
     Dates: start: 20250819, end: 20250820
  37. LOVENOX [Concomitant]
     Active Substance: ENOXAPARIN SODIUM
     Dosage: 40 MG, QD
     Route: 058
     Dates: start: 20251005
  38. MESNA [Concomitant]
     Active Substance: MESNA
     Dosage: 200 MILLIGRAM, QD
     Route: 048
     Dates: start: 20250711, end: 20250919
  39. MESNA [Concomitant]
     Active Substance: MESNA
     Indication: Chemotherapy
     Dosage: 400 MILLIGRAM, BID
     Route: 048
     Dates: start: 20250711, end: 20250711
  40. MIDAZOLAM [Concomitant]
     Active Substance: MIDAZOLAM
     Indication: Biopsy bone marrow
     Dosage: 3 MILLIGRAM ONCE
     Route: 042
     Dates: start: 20251002, end: 20251002
  41. MIDAZOLAM [Concomitant]
     Active Substance: MIDAZOLAM
     Dosage: 4 MILLIGRAM ONCE
     Route: 042
     Dates: start: 20250606, end: 20250606
  42. Mundisal [Concomitant]
     Indication: Mucosal inflammation
     Dosage: AS NEEDED
     Route: 065
     Dates: start: 20250604, end: 20250605
  43. MYCOSTATIN [Concomitant]
     Active Substance: NYSTATIN
     Indication: Oral candidiasis
     Dosage: 4 TIMES PER DAY
     Route: 048
     Dates: start: 20250718, end: 20250821
  44. NETUPITANT [Concomitant]
     Active Substance: NETUPITANT
     Indication: Chemotherapy
     Dosage: 300 MG, QD
     Route: 048
     Dates: start: 20250711, end: 20250711
  45. ONDANSETRON HYDROCHLORIDE [Concomitant]
     Active Substance: ONDANSETRON HYDROCHLORIDE
     Indication: Product used for unknown indication
     Dosage: UNK
     Route: 065
  46. PALONOSETRON [Concomitant]
     Active Substance: PALONOSETRON
     Indication: Chemotherapy
     Dosage: 0.5 MG, QD
     Route: 048
     Dates: start: 20250711, end: 20250711
  47. PANTOPRAZOLE SODIUM [Concomitant]
     Active Substance: PANTOPRAZOLE SODIUM
     Indication: Ulcer
     Dosage: 40 MG, QD
     Route: 048
     Dates: start: 20250617
  48. ACETAMINOPHEN [Concomitant]
     Active Substance: ACETAMINOPHEN
     Indication: Product used for unknown indication
     Dosage: 1 G, AS NEEDED
     Route: 042
     Dates: start: 20250604, end: 20250605
  49. ACETAMINOPHEN [Concomitant]
     Active Substance: ACETAMINOPHEN
     Dosage: 500 MG, AS NEEDED
     Route: 042
     Dates: start: 20250604, end: 20250605
  50. Paspertin [Concomitant]
     Indication: Prophylaxis of nausea and vomiting
     Dosage: 10 MILLIGRAM, PRN
     Route: 048
     Dates: start: 20250409, end: 20250605
  51. Paspertin [Concomitant]
     Indication: Product used for unknown indication
     Dosage: UNK
     Route: 065
  52. LIDOCAINE [Concomitant]
     Active Substance: LIDOCAINE
     Indication: Haemorrhoids
     Dosage: 50 MILLIGRAM, PRN
     Route: 054
     Dates: start: 202505, end: 202505
  53. PREDNISOLONE [Concomitant]
     Active Substance: PREDNISOLONE
     Dosage: 100 MG, QD
     Route: 048
     Dates: start: 20250613, end: 20250623
  54. PREDNISOLONE [Concomitant]
     Active Substance: PREDNISOLONE
     Dosage: 150 MG, QD
     Route: 048
     Dates: start: 20250611, end: 20250612
  55. PREDNISOLONE [Concomitant]
     Active Substance: PREDNISOLONE
     Dosage: 25 MG, QD
     Route: 048
     Dates: start: 20250628, end: 20250731
  56. PREDNISOLONE [Concomitant]
     Active Substance: PREDNISOLONE
     Dosage: 37.5 MG, QD
     Route: 048
     Dates: start: 20250723, end: 20250725
  57. PREDNISOLONE [Concomitant]
     Active Substance: PREDNISOLONE
     Indication: Haemophagocytic lymphohistiocytosis
     Dosage: 50 MG, QD
     Route: 048
     Dates: start: 20250624, end: 20250722
  58. PREDNISOLONE [Concomitant]
     Active Substance: PREDNISOLONE
     Dosage: 62.5 MG, QD
     Route: 048
     Dates: start: 20250709, end: 20250718
  59. PREDNISOLONE [Concomitant]
     Active Substance: PREDNISOLONE
     Dosage: 75 MG, QD
     Route: 048
     Dates: start: 20250701, end: 20250708
  60. TOCILIZUMAB [Concomitant]
     Active Substance: TOCILIZUMAB
     Indication: Haemophagocytic lymphohistiocytosis
     Dosage: 800 MG, QD
     Route: 042
     Dates: start: 20250606, end: 20250606
  61. SAGE [Concomitant]
     Active Substance: SAGE
     Indication: Stomatitis
     Dosage: UNK UNK, AS NEEDED
     Route: 048
     Dates: start: 202505, end: 202506
  62. TOCILIZUMAB [Concomitant]
     Active Substance: TOCILIZUMAB
     Indication: Haemophagocytic lymphohistiocytosis
     Dosage: 800 MG, QD
     Route: 042
     Dates: start: 20250606, end: 20250606
  63. DIFLUCORTOLONE VALERATE\ISOCONAZOLE NITRATE [Concomitant]
     Active Substance: DIFLUCORTOLONE VALERATE\ISOCONAZOLE NITRATE
     Indication: Product used for unknown indication
     Dosage: UNK UNK, BID
     Route: 061
     Dates: start: 20251007, end: 20251010
  64. ISOCONAZOLE NITRATE [Concomitant]
     Active Substance: ISOCONAZOLE NITRATE
     Indication: Product used for unknown indication
     Dosage: UNK UNK, BID
     Route: 061
     Dates: start: 20251011, end: 20251013
  65. TRIMETHOPRIM [Concomitant]
     Active Substance: TRIMETHOPRIM
     Indication: Haemophagocytic lymphohistiocytosis
     Dosage: 160 MG
     Route: 048
     Dates: start: 20250606, end: 20250818
  66. METHYLPREDNISOLONE [Concomitant]
     Active Substance: METHYLPREDNISOLONE
     Indication: Haemophagocytic lymphohistiocytosis
     Dosage: 16 MG, QD
     Route: 042
     Dates: start: 20250604, end: 20250604
  67. METHYLPREDNISOLONE [Concomitant]
     Active Substance: METHYLPREDNISOLONE
     Dosage: 32 MG, QD
     Route: 042
     Dates: start: 20250605, end: 20250610
  68. VALACYCLOVIR HYDROCHLORIDE [Concomitant]
     Active Substance: VALACYCLOVIR HYDROCHLORIDE
     Indication: Haemophagocytic lymphohistiocytosis
     Dosage: 500 MILLIGRAM, BID
     Route: 048
     Dates: start: 20250606, end: 20250818
  69. MORPHINE [Concomitant]
     Active Substance: MORPHINE
     Dosage: 1 MILLILITER, PRN
     Route: 048
     Dates: start: 20250928, end: 20250929
  70. MORPHINE [Concomitant]
     Active Substance: MORPHINE
     Dosage: 1 MILLILITER, PRN
     Route: 048
     Dates: start: 20251001
  71. MORPHINE [Concomitant]
     Active Substance: MORPHINE
     Dosage: 10 MILLIGRAM, BID
     Route: 048
     Dates: start: 20250927, end: 20250929
  72. MORPHINE [Concomitant]
     Active Substance: MORPHINE
     Dosage: 10 MILLIGRAM, BID
     Route: 048
     Dates: start: 20250930, end: 20251010
  73. MORPHINE [Concomitant]
     Active Substance: MORPHINE
     Dosage: 30 MG ONCE
     Route: 048
     Dates: start: 20250929, end: 20250929
  74. MORPHINE [Concomitant]
     Active Substance: MORPHINE
     Indication: Product used for unknown indication
     Dosage: 40 MILLIGRAM ONCE
     Route: 048
     Dates: start: 20250930, end: 20250930
  75. MORPHINE [Concomitant]
     Active Substance: MORPHINE
     Dosage: 30 MILLIGRAM, BID
     Route: 048
     Dates: start: 20250930
  76. LIDOCAINE HYDROCHLORIDE [Concomitant]
     Active Substance: LIDOCAINE HYDROCHLORIDE
     Indication: Biopsy bone marrow
     Dosage: ONCE
     Route: 058
     Dates: start: 20250606, end: 20250606
  77. FILGRASTIM [Concomitant]
     Active Substance: FILGRASTIM
     Indication: Neutrophil count decreased
     Dosage: AS NEEDED
     Route: 058
     Dates: start: 20250530, end: 20250604
  78. FILGRASTIM [Concomitant]
     Active Substance: FILGRASTIM
     Dosage: ONCE
     Route: 058
     Dates: start: 20250608, end: 20250608
  79. ZYPREXA [Concomitant]
     Active Substance: OLANZAPINE
     Indication: Chemotherapy
     Dosage: 5 MG, QD
     Route: 048
     Dates: start: 20250711, end: 20250714

REACTIONS (1)
  - Haemophagocytic lymphohistiocytosis [Recovered/Resolved]

NARRATIVE: CASE EVENT DATE: 20250604
